FAERS Safety Report 21540086 (Version 8)
Quarter: 2023Q1

REPORT INFORMATION
  Report Type: Report from Study
  Country: US (occurrence: US)
  Receive Date: 20221102
  Receipt Date: 20230211
  Transmission Date: 20230418
  Serious: No
  Sender: FDA-Public Use
  Company Number: US-NOVARTISTESTPH-NVSC2022US246811

PATIENT
  Sex: Male

DRUGS (2)
  1. PROMACTA [Suspect]
     Active Substance: ELTROMBOPAG OLAMINE
     Indication: Product used for unknown indication
     Dosage: UNK
     Route: 065
  2. PROMACTA [Suspect]
     Active Substance: ELTROMBOPAG OLAMINE
     Dosage: 25 MG
     Route: 048

REACTIONS (12)
  - Anxiety [Unknown]
  - Pain [Unknown]
  - Platelet count decreased [Unknown]
  - Influenza like illness [Unknown]
  - Chest pain [Unknown]
  - Rash [Unknown]
  - Rhinorrhoea [Unknown]
  - Eye discharge [Unknown]
  - Hypersensitivity [Unknown]
  - Malaise [Unknown]
  - Emotional disorder [Unknown]
  - Product availability issue [Unknown]
